FAERS Safety Report 11672117 (Version 1)
Quarter: 2015Q4

REPORT INFORMATION
  Report Type: Spontaneous
  Country: US (occurrence: US)
  Receive Date: 20151027
  Receipt Date: 20151027
  Transmission Date: 20160304
  Serious: No
  Sender: FDA-Public Use
  Company Number: US-ELI_LILLY_AND_COMPANY-US201006005658

PATIENT
  Sex: Female

DRUGS (1)
  1. FORTEO [Suspect]
     Active Substance: TERIPARATIDE

REACTIONS (13)
  - Dizziness [Unknown]
  - Procedural pain [Unknown]
  - Fatigue [Unknown]
  - Hypersomnia [Unknown]
  - White blood cell count increased [Unknown]
  - Eye disorder [Unknown]
  - Feeling abnormal [Unknown]
  - Headache [Unknown]
  - Gait disturbance [Unknown]
  - Pain [Unknown]
  - Blood disorder [Not Recovered/Not Resolved]
  - Balance disorder [Unknown]
  - Confusional state [Unknown]
